FAERS Safety Report 17922616 (Version 1)
Quarter: 2020Q2

REPORT INFORMATION
  Report Type: Spontaneous
  Country: US (occurrence: US)
  Receive Date: 20200622
  Receipt Date: 20200622
  Transmission Date: 20200714
  Serious: No
  Sender: FDA-Public Use
  Company Number: US-TEVA-2020-US-1790204

PATIENT
  Sex: Female

DRUGS (1)
  1. AJOVY [Suspect]
     Active Substance: FREMANEZUMAB-VFRM
     Indication: MIGRAINE
     Dosage: MONTHLY INJECTIONS
     Route: 065

REACTIONS (4)
  - Injection site pruritus [Unknown]
  - Injection site exfoliation [Unknown]
  - Injection site reaction [Unknown]
  - Injection site erythema [Unknown]
